FAERS Safety Report 18522008 (Version 1)
Quarter: 2020Q4

REPORT INFORMATION
  Report Type: Spontaneous
  Country: US (occurrence: US)
  Receive Date: 20201119
  Receipt Date: 20201119
  Transmission Date: 20210114
  Serious: No
  Sender: FDA-Public Use
  Company Number: US-SUNOVION-2020SUN003306

PATIENT
  Age: 79 Year
  Sex: Female

DRUGS (1)
  1. KYNMOBI [Suspect]
     Active Substance: APOMORPHINE HYDROCHLORIDE
     Dosage: 10 MG
     Route: 060

REACTIONS (6)
  - Therapeutic product effect increased [Unknown]
  - Feeling hot [Recovered/Resolved]
  - Hot flush [Unknown]
  - Nausea [Unknown]
  - Cold sweat [Recovered/Resolved]
  - Headache [Unknown]
